FAERS Safety Report 10170857 (Version 1)
Quarter: 2014Q2

REPORT INFORMATION
  Report Type: Spontaneous
  Country: US (occurrence: None)
  Receive Date: 20140513
  Receipt Date: 20140513
  Transmission Date: 20141212
  Serious: Yes (Disabling)
  Sender: FDA-Public Use
  Company Number: None

PATIENT
  Age: 60 Year
  Sex: Male
  Weight: 107.96 kg

DRUGS (9)
  1. TRAZODONE [Suspect]
     Indication: DEPRESSION
     Dosage: 2 PILL OR MORE
     Route: 048
     Dates: start: 201007, end: 201404
  2. TRAZODONE [Suspect]
     Indication: INSOMNIA
     Dosage: 2 PILL OR MORE
     Route: 048
     Dates: start: 201007, end: 201404
  3. GLIPIZIDE [Concomitant]
  4. INSULIN-GLARGINE [Concomitant]
  5. SIMVASTATIN [Concomitant]
  6. VENLAFAZINE [Concomitant]
  7. BUPROPION [Suspect]
  8. VITAMIN [Concomitant]
  9. LISINOPRIL [Concomitant]

REACTIONS (4)
  - Musculoskeletal stiffness [None]
  - Arthralgia [None]
  - Pain [None]
  - Arthralgia [None]
